FAERS Safety Report 7861612-6 (Version None)
Quarter: 2011Q4

REPORT INFORMATION
  Report Type: 
  Country: None (occurrence: None)
  Receive Date: 20111027
  Receipt Date: 20111025
  Transmission Date: 20120403
  Serious: Yes (Other)
  Sender: FDA-Public Use
  Company Number: GB-PFIZER INC-2011219456

PATIENT
  Age: 63 Year
  Sex: Female

DRUGS (1)
  1. VARENICLINE TARTRATE [Suspect]
     Indication: SMOKING CESSATION THERAPY
     Dosage: 1 MG; UNK
     Route: 048
     Dates: start: 20110324, end: 20110701

REACTIONS (4)
  - ANXIETY [None]
  - PANIC ATTACK [None]
  - DEPRESSIVE SYMPTOM [None]
  - IMPAIRED WORK ABILITY [None]
